FAERS Safety Report 6671426-0 (Version None)
Quarter: 2010Q2

REPORT INFORMATION
  Report Type: 
  Country: None (occurrence: None)
  Receive Date: 20100407
  Receipt Date: 20100323
  Transmission Date: 20101027
  Serious: Yes (Hospitalization, Other)
  Sender: FDA-Public Use
  Company Number: FR-ABBOTT-09P-056-0607213-00

PATIENT
  Age: 43 Year
  Sex: Female
  Weight: 64 kg

DRUGS (4)
  1. HUMIRA [Suspect]
     Indication: CROHN'S DISEASE
     Dosage: ONCE
     Route: 058
     Dates: start: 20090403, end: 20090403
  2. HUMIRA [Suspect]
     Dosage: ONCE
     Route: 058
     Dates: start: 20090417, end: 20090417
  3. HUMIRA [Suspect]
     Route: 058
     Dates: start: 20090501, end: 20090630
  4. HUMIRA [Suspect]
     Route: 058
     Dates: start: 20090731

REACTIONS (2)
  - ANAL STENOSIS [None]
  - GASTROINTESTINAL HYPOMOTILITY [None]
